FAERS Safety Report 8173872-5 (Version None)
Quarter: 2012Q1

REPORT INFORMATION
  Report Type: 
  Country: None (occurrence: None)
  Receive Date: 20120224
  Receipt Date: 20120216
  Transmission Date: 20120608
  Serious: Yes (Disabling)
  Sender: FDA-Public Use
  Company Number: 2012GR_BP001204

PATIENT
  Age: 81 Year
  Sex: Male

DRUGS (7)
  1. SOTALOL HCL [Concomitant]
  2. ISPAGHULA HSK IISPAGHULA HUSK) [Concomitant]
  3. VISOTEARS [Concomitant]
  4. FINASTERIDE [Suspect]
     Indication: PRODUCT USED FOR UNKNOWN INDICATION
     Dosage: NR, UNKNOWN
     Dates: start: 20111116
  5. DOXAZOSIN MESYLATE [Concomitant]
  6. WARFARIN SODIUM [Concomitant]
  7. MEBEVERINE HYDROCHLORIDE 9MEBVERINE HYDROCHLORIDE) [Concomitant]

REACTIONS (3)
  - URINE FLOW DECREASED [None]
  - CONDITION AGGRAVATED [None]
  - URINARY RETENTION [None]
